FAERS Safety Report 25710087 (Version 2)
Quarter: 2025Q3

REPORT INFORMATION
  Report Type: Spontaneous
  Country: EU (occurrence: EU)
  Receive Date: 20250821
  Receipt Date: 20250903
  Transmission Date: 20251020
  Serious: Yes (Other)
  Sender: RANBAXY
  Company Number: EU-SUN PHARMACEUTICAL INDUSTRIES INC-2025R1-523723

PATIENT
  Age: 54 Year

DRUGS (3)
  1. FLUTICASONE PROPIONATE\FORMOTEROL FUMARATE [Interacting]
     Active Substance: FLUTICASONE PROPIONATE\FORMOTEROL FUMARATE
     Indication: Chronic obstructive pulmonary disease
  2. COBICISTAT [Interacting]
     Active Substance: COBICISTAT
     Indication: HIV infection
     Route: 065
     Dates: start: 2016
  3. DARUNAVIR [Suspect]
     Active Substance: DARUNAVIR
     Indication: HIV infection
     Route: 065
     Dates: start: 2016

REACTIONS (5)
  - Hirsutism [Unknown]
  - Blood pressure increased [Unknown]
  - Cushingoid [Unknown]
  - Drug interaction [Unknown]
  - Contusion [Unknown]
